FAERS Safety Report 13922774 (Version 5)
Quarter: 2017Q4

REPORT INFORMATION
  Report Type: Spontaneous
  Country: FJ (occurrence: FJ)
  Receive Date: 20170830
  Receipt Date: 20171030
  Transmission Date: 20180320
  Serious: Yes (Disabling, Other)
  Sender: FDA-Public Use
  Company Number: FJ-IMPAX LABORATORIES, INC-2017-IPXL-02558

PATIENT
  Age: 74 Year
  Sex: Female

DRUGS (7)
  1. DIETHYLCARBAMAZINE CITRATE [Suspect]
     Active Substance: DIETHYLCARBAMAZINE CITRATE
     Indication: FILARIASIS LYMPHATIC
     Dosage: 100 MG, QID
     Route: 048
     Dates: start: 20170805
  2. IVERMECTIN. [Suspect]
     Active Substance: IVERMECTIN
     Indication: FILARIASIS LYMPHATIC
     Dosage: 3 MG, QID
     Route: 065
     Dates: start: 20170805
  3. PERMETHRIN. [Suspect]
     Active Substance: PERMETHRIN
     Indication: FILARIASIS LYMPHATIC
     Dosage: UNK
     Route: 065
     Dates: start: 20170805
  4. ASPIRIN. [Concomitant]
     Active Substance: ASPIRIN
     Indication: PRODUCT USED FOR UNKNOWN INDICATION
     Dosage: UNK
     Route: 065
  5. ALBENZA [Suspect]
     Active Substance: ALBENDAZOLE
     Indication: FILARIASIS LYMPHATIC
     Dosage: 400 MG, QD
     Route: 048
     Dates: start: 20170805
  6. GLIPIZIDE. [Concomitant]
     Active Substance: GLIPIZIDE
     Indication: PRODUCT USED FOR UNKNOWN INDICATION
     Dosage: UNK
     Route: 065
  7. HYDROCHLOROTHIAZIDE. [Concomitant]
     Active Substance: HYDROCHLOROTHIAZIDE
     Indication: PRODUCT USED FOR UNKNOWN INDICATION
     Dosage: UNK
     Route: 065

REACTIONS (1)
  - Cellulitis [Recovered/Resolved]

NARRATIVE: CASE EVENT DATE: 20170810
